FAERS Safety Report 8071756-4 (Version None)
Quarter: 2012Q1

REPORT INFORMATION
  Report Type: 
  Country: None (occurrence: None)
  Receive Date: 20120125
  Receipt Date: 20120118
  Transmission Date: 20120608
  Serious: Yes (Death)
  Sender: FDA-Public Use
  Company Number: US-ALLERGAN-1200763US

PATIENT
  Age: 57 Year
  Sex: Female

DRUGS (3)
  1. PAIN MEDICATION [Suspect]
     Indication: PRODUCT USED FOR UNKNOWN INDICATION
     Route: 048
  2. BOTULINUM TOXIN TYPE A [Suspect]
     Indication: HAEMORRHOID OPERATION
     Dosage: UNK
     Route: 030
     Dates: start: 20110322, end: 20110322
  3. BOTULINUM TOXIN TYPE A [Suspect]
     Indication: POSTOPERATIVE CARE

REACTIONS (2)
  - DEATH [None]
  - OVERDOSE [None]
